FAERS Safety Report 9472195 (Version 1)
Quarter: 2013Q3

REPORT INFORMATION
  Report Type: Spontaneous
  Country: DE (occurrence: DE)
  Receive Date: 20130823
  Receipt Date: 20130823
  Transmission Date: 20140515
  Serious: Yes (Other)
  Sender: FDA-Public Use
  Company Number: DE-ROCHE-1264544

PATIENT
  Sex: Female

DRUGS (2)
  1. MABTHERA [Suspect]
     Indication: JUVENILE IDIOPATHIC ARTHRITIS
     Dosage: LAST INFUSION PRIOR TO EVENT ONSET : 14/AUG/2013
     Route: 065
  2. MABTHERA [Suspect]
     Indication: OFF LABEL USE

REACTIONS (3)
  - Coagulopathy [Not Recovered/Not Resolved]
  - Blood fibrinogen decreased [Not Recovered/Not Resolved]
  - Coagulation factor deficiency [Unknown]
